FAERS Safety Report 7028565-4 (Version None)
Quarter: 2010Q4

REPORT INFORMATION
  Report Type: 
  Country: None (occurrence: None)
  Receive Date: 20101005
  Receipt Date: 20100805
  Transmission Date: 20110411
  Serious: Yes (Death)
  Sender: FDA-Public Use
  Company Number: ZA-SANOFI-AVENTIS-2010SA044093

PATIENT
  Age: 51 Year
  Sex: Female
  Weight: 77.7 kg

DRUGS (17)
  1. DOCETAXEL [Suspect]
     Route: 041
     Dates: start: 20100702, end: 20100702
  2. GRANOCYTE [Suspect]
     Indication: PROPHYLAXIS
     Dates: start: 20100703, end: 20100707
  3. DEXAMETHASONE [Concomitant]
  4. CLEXANE [Concomitant]
  5. ESOMEPRAZOLE [Concomitant]
  6. ATERAX [Concomitant]
     Indication: ANXIETY
     Route: 048
     Dates: start: 20100706, end: 20100726
  7. MST [Concomitant]
     Indication: PAIN MANAGEMENT
     Route: 048
     Dates: start: 20100706, end: 20100726
  8. NULYTELY [Concomitant]
     Indication: CONSTIPATION
     Route: 048
     Dates: start: 20100706, end: 20100726
  9. ACETAMINOPHEN AND TRAMADOL HCL [Concomitant]
     Indication: PAIN MANAGEMENT
     Route: 048
     Dates: start: 20100706, end: 20100726
  10. URBANOL [Concomitant]
     Indication: ANXIETY
     Route: 048
     Dates: start: 20100706, end: 20100726
  11. PHENERGAN [Concomitant]
     Route: 030
     Dates: start: 20100702, end: 20100702
  12. DECASONE [Concomitant]
     Indication: PROPHYLAXIS
     Route: 042
     Dates: start: 20100702, end: 20100702
  13. GRANISETRON HCL [Concomitant]
     Indication: PROPHYLAXIS
     Route: 042
     Dates: start: 20100702, end: 20100702
  14. GRANISETRON HCL [Concomitant]
     Route: 048
     Dates: start: 20100702, end: 20100726
  15. SOLU-CORTEF [Concomitant]
     Route: 042
     Dates: start: 20100702, end: 20100702
  16. ZANTAC [Concomitant]
     Indication: PROPHYLAXIS
     Route: 042
     Dates: start: 20100702, end: 20100702
  17. MAXOLON [Concomitant]
     Route: 048
     Dates: start: 20100702, end: 20100726

REACTIONS (1)
  - PNEUMONIA [None]
